FAERS Safety Report 9557392 (Version 1)
Quarter: 2013Q3

REPORT INFORMATION
  Report Type: Spontaneous
  Country: US (occurrence: None)
  Receive Date: 20130724
  Receipt Date: 20130724
  Transmission Date: 20140515
  Serious: Yes (Disabling)
  Sender: FDA-Public Use
  Company Number: PHEH2012US011593

PATIENT
  Sex: Female

DRUGS (6)
  1. RECLAST (ZOLEDRONATE) SOLUTION FOR INJECTION [Suspect]
     Indication: OSTEOPOROSIS
     Route: 042
     Dates: start: 20111228
  2. ASACOL (MESALAZINE) [Concomitant]
  3. LEVOTHYROXINE [Concomitant]
  4. PRESTIQ (DESVENLAFAXINE SUCCINATE) [Concomitant]
  5. SIMVASTATIN [Concomitant]
  6. WELLBUTRIN (BUPROPION HYDROCHLORIDE) [Concomitant]

REACTIONS (4)
  - Arthralgia [None]
  - Influenza like illness [None]
  - Gait disturbance [None]
  - Dysstasia [None]
